FAERS Safety Report 5736879-0 (Version None)
Quarter: 2008Q2

REPORT INFORMATION
  Report Type: 
  Country: None (occurrence: None)
  Receive Date: 20080509
  Receipt Date: 20080428
  Transmission Date: 20081010
  Serious: Yes (Other)
  Sender: FDA-Public Use
  Company Number: OPER20080088

PATIENT
  Age: 50 Year
  Sex: Male
  Weight: 88.4514 kg

DRUGS (5)
  1. OPANA ER [Suspect]
     Indication: NECK PAIN
     Dosage: BID, PER ORAL; 100 MG, BID, PER ORAL; 80 MG, BID, PER ORAL; 60 MG, BID, PER ORAL
     Route: 048
     Dates: start: 20080414, end: 20080428
  2. OPANA ER [Suspect]
     Indication: NECK PAIN
     Dosage: BID, PER ORAL; 100 MG, BID, PER ORAL; 80 MG, BID, PER ORAL; 60 MG, BID, PER ORAL
     Route: 048
     Dates: start: 20080324
  3. OPANA ER [Suspect]
     Indication: NECK PAIN
     Dosage: BID, PER ORAL; 100 MG, BID, PER ORAL; 80 MG, BID, PER ORAL; 60 MG, BID, PER ORAL
     Route: 048
     Dates: start: 20080429
  4. TOPAMAX [Suspect]
     Indication: MIGRAINE
     Dosage: 50 MG, 1 TABLET QD, PER ORAL
     Route: 048
     Dates: start: 20080324
  5. LEXAPRO [Concomitant]

REACTIONS (6)
  - DIZZINESS [None]
  - EJACULATION DISORDER [None]
  - FEELING ABNORMAL [None]
  - OVERDOSE [None]
  - RESPIRATORY DISORDER [None]
  - SENSATION OF FOREIGN BODY [None]
